FAERS Safety Report 7532733-2 (Version None)
Quarter: 2011Q2

REPORT INFORMATION
  Report Type: 
  Country: None (occurrence: None)
  Receive Date: 20110608
  Receipt Date: 20110602
  Transmission Date: 20111010
  Serious: Yes (Hospitalization)
  Sender: FDA-Public Use
  Company Number: A0930059A

PATIENT
  Sex: Male

DRUGS (3)
  1. ADVAIR DISKUS 100/50 [Suspect]
     Indication: EMPHYSEMA
     Route: 055
  2. ALBUTEROL SULFATE AUTOHALER [Concomitant]
  3. NEBULIZER [Concomitant]

REACTIONS (4)
  - PNEUMONIA [None]
  - LARYNGITIS [None]
  - DRY MOUTH [None]
  - APHONIA [None]
